FAERS Safety Report 8127696-5 (Version None)
Quarter: 2012Q1

REPORT INFORMATION
  Report Type: 
  Country: None (occurrence: None)
  Receive Date: 20120210
  Receipt Date: 20120207
  Transmission Date: 20120608
  Serious: Yes (Other)
  Sender: FDA-Public Use
  Company Number: US-PFIZER INC-2012033669

PATIENT
  Age: 81 Year
  Sex: Female

DRUGS (1)
  1. NEURONTIN [Suspect]
     Indication: PAIN
     Dosage: UNK

REACTIONS (9)
  - WEIGHT DECREASED [None]
  - FALL [None]
  - DEPRESSION [None]
  - SLOW SPEECH [None]
  - SOMNOLENCE [None]
  - FEELING ABNORMAL [None]
  - HYPERSOMNIA [None]
  - HOSTILITY [None]
  - LOSS OF CONSCIOUSNESS [None]
